FAERS Safety Report 20099433 (Version 2)
Quarter: 2021Q4

REPORT INFORMATION
  Report Type: Report from Study
  Country: IL (occurrence: IL)
  Receive Date: 20211122
  Receipt Date: 20211124
  Transmission Date: 20220303
  Serious: Yes (Death)
  Sender: FDA-Public Use
  Company Number: IL-ABBVIE-21K-082-3739358-00

PATIENT
  Age: 79 Year
  Sex: Male

DRUGS (4)
  1. CARBIDOPA\LEVODOPA [Suspect]
     Active Substance: CARBIDOPA\LEVODOPA
     Indication: Parkinson^s disease
     Dosage: MORNING DOSAGE(ML)  11.0 , CONTINUOUS DOSAGE (ML/H)  3.7 ML/HOUR  , ED(ML)  1.0
     Route: 050
     Dates: start: 20200220
  2. CARBIDOPA\LEVODOPA [Suspect]
     Active Substance: CARBIDOPA\LEVODOPA
     Dosage: MORNING DOSAGE(ML)  11.0 , CONTINUOUS DOSAGE (ML/H)  4.0 , EXTRA DOSAGE (ML)  1.0
     Route: 050
  3. CARBIDOPA\LEVODOPA [Suspect]
     Active Substance: CARBIDOPA\LEVODOPA
     Dosage: CONTINUED DOSE WAS INCREASED FROM 3 TO 3.7
     Route: 050
  4. CARBIDOPA\LEVODOPA [Suspect]
     Active Substance: CARBIDOPA\LEVODOPA
     Dosage: MORNING DOSAGE(ML) 10.0, CONTINUOUS DOSAGE (ML/H) 3.7, EXTRA DOSAGE (ML) 1.0
     Route: 050

REACTIONS (3)
  - General physical health deterioration [Fatal]
  - General physical health deterioration [Recovered/Resolved]
  - Gait disturbance [Recovered/Resolved]

NARRATIVE: CASE EVENT DATE: 20210817
